FAERS Safety Report 6716982-9 (Version None)
Quarter: 2010Q2

REPORT INFORMATION
  Report Type: 
  Country: None (occurrence: None)
  Receive Date: 20100510
  Receipt Date: 20100510
  Transmission Date: 20101027
  Serious: Yes (Hospitalization)
  Sender: FDA-Public Use
  Company Number: None

PATIENT
  Age: 20 Month
  Sex: Male
  Weight: 11.3399 kg

DRUGS (2)
  1. CONCENTRATED TYLENOL INFANT DROPS [Suspect]
     Indication: VIRAL PHARYNGITIS
     Dosage: 1.6 ML 4 HRS PO
     Route: 048
     Dates: start: 20100425, end: 20100429
  2. CONCENTRATED MOTRIN INFANTS DROPS [Suspect]
     Indication: VIRAL PHARYNGITIS
     Dosage: 1.25 ML 6 HRS PO
     Route: 048
     Dates: start: 20100425, end: 20100429

REACTIONS (2)
  - INCORRECT DOSE ADMINISTERED [None]
  - PRODUCT QUALITY ISSUE [None]
